FAERS Safety Report 20913425 (Version 1)
Quarter: 2022Q2

REPORT INFORMATION
  Report Type: Spontaneous
  Country: US (occurrence: US)
  Receive Date: 20220603
  Receipt Date: 20220603
  Transmission Date: 20220721
  Serious: No
  Sender: FDA-Public Use
  Company Number: US-ELI_LILLY_AND_COMPANY-US202205012959

PATIENT
  Sex: Female

DRUGS (1)
  1. BEBTELOVIMAB [Suspect]
     Active Substance: BEBTELOVIMAB
     Indication: COVID-19
     Dosage: UNK, SINGLE
     Route: 065
     Dates: start: 20220525, end: 20220525

REACTIONS (11)
  - Oropharyngeal pain [Unknown]
  - Arthralgia [Unknown]
  - Paraesthesia [Unknown]
  - Hypoaesthesia [Unknown]
  - Arthralgia [Unknown]
  - Dizziness [Unknown]
  - Pyrexia [Unknown]
  - Joint instability [Unknown]
  - Arthropathy [Unknown]
  - Asthenia [Unknown]
  - Hypoaesthesia [Unknown]
